FAERS Safety Report 9652091 (Version 1)
Quarter: 2013Q4

REPORT INFORMATION
  Report Type: Spontaneous
  Country: HR (occurrence: HR)
  Receive Date: 20131029
  Receipt Date: 20131029
  Transmission Date: 20140711
  Serious: Yes (Death, Hospitalization, Other)
  Sender: FDA-Public Use
  Company Number: HR-BAXTER-2013BAX041263

PATIENT
  Sex: Male

DRUGS (18)
  1. DIANEAL PD4 OTOPINA ZA PERITONEJSKU DIJALIZU [Suspect]
     Indication: PERITONEAL DIALYSIS
     Route: 033
     Dates: start: 20050310, end: 20130531
  2. DIANEAL PD4 OTOPINA ZA PERITONEJSKU DIJALIZU [Suspect]
     Indication: RENAL FAILURE CHRONIC
  3. NUTRINEAL PD4 S 1,1% AMINOKISELIN [Suspect]
     Indication: PERITONEAL DIALYSIS
     Route: 033
     Dates: start: 20050310, end: 20130531
  4. NUTRINEAL PD4 S 1,1% AMINOKISELIN [Suspect]
     Indication: RENAL FAILURE CHRONIC
  5. EXTRANEAL [Suspect]
     Indication: PERITONEAL DIALYSIS
     Route: 033
     Dates: start: 20050310, end: 20130531
  6. EXTRANEAL [Suspect]
     Indication: RENAL FAILURE CHRONIC
  7. NOVORAPID [Concomitant]
     Indication: PRODUCT USED FOR UNKNOWN INDICATION
  8. LANTUS [Concomitant]
     Indication: PRODUCT USED FOR UNKNOWN INDICATION
  9. RECORMON [Concomitant]
     Indication: PRODUCT USED FOR UNKNOWN INDICATION
  10. B12 [Concomitant]
     Indication: PRODUCT USED FOR UNKNOWN INDICATION
  11. FOLACIN [Concomitant]
     Indication: PRODUCT USED FOR UNKNOWN INDICATION
  12. CARVETREND [Concomitant]
     Indication: PRODUCT USED FOR UNKNOWN INDICATION
  13. LAAVEN [Concomitant]
     Indication: PRODUCT USED FOR UNKNOWN INDICATION
  14. LORISTA [Concomitant]
     Indication: PRODUCT USED FOR UNKNOWN INDICATION
  15. RENVELA [Concomitant]
     Indication: PRODUCT USED FOR UNKNOWN INDICATION
  16. PHYSIOTENS [Concomitant]
     Indication: PRODUCT USED FOR UNKNOWN INDICATION
  17. ASPIRIN PROTECT [Concomitant]
     Indication: PRODUCT USED FOR UNKNOWN INDICATION
  18. FERRUM LEK [Concomitant]
     Indication: PRODUCT USED FOR UNKNOWN INDICATION

REACTIONS (6)
  - Cardio-respiratory arrest [Fatal]
  - Lung infiltration [Unknown]
  - Coma [Unknown]
  - Aspiration [Unknown]
  - Regurgitation [Unknown]
  - Fungal peritonitis [Recovering/Resolving]
